FAERS Safety Report 7668992-5 (Version None)
Quarter: 2011Q3

REPORT INFORMATION
  Report Type: 
  Country: None (occurrence: None)
  Receive Date: 20110808
  Receipt Date: 20110804
  Transmission Date: 20111222
  Serious: Yes (Other)
  Sender: FDA-Public Use
  Company Number: SG-PFIZER INC-2011179210

PATIENT
  Age: 60 Year
  Sex: Male

DRUGS (3)
  1. CETRIMIDE [Suspect]
  2. LIDOCAINE HYDROCHLORIDE [Suspect]
  3. CHLORHEXIDINE [Suspect]

REACTIONS (2)
  - ANGIOEDEMA [None]
  - URTICARIA [None]
